FAERS Safety Report 22215906 (Version 2)
Quarter: 2023Q2

REPORT INFORMATION
  Report Type: Report from Study
  Country: CA (occurrence: CA)
  Receive Date: 20230417
  Receipt Date: 20230421
  Transmission Date: 20230721
  Serious: No
  Sender: FDA-Public Use
  Company Number: CA-002147023-NVSC2021CA217424

PATIENT
  Age: 49 Year
  Sex: Female

DRUGS (4)
  1. KESIMPTA [Suspect]
     Active Substance: OFATUMUMAB
     Indication: Relapsing-remitting multiple sclerosis
     Dosage: UNK (AT17 HRS)
     Route: 058
     Dates: start: 20210921
  2. KESIMPTA [Suspect]
     Active Substance: OFATUMUMAB
     Dosage: UNK
     Route: 058
     Dates: start: 20210928
  3. KESIMPTA [Suspect]
     Active Substance: OFATUMUMAB
     Dosage: UNK
     Route: 058
     Dates: start: 20220315
  4. KESIMPTA [Suspect]
     Active Substance: OFATUMUMAB
     Dosage: UNK
     Route: 058
     Dates: start: 20220814

REACTIONS (12)
  - Influenza like illness [Recovering/Resolving]
  - Acne [Unknown]
  - Pruritus [Not Recovered/Not Resolved]
  - Dyspnoea [Not Recovered/Not Resolved]
  - COVID-19 [Unknown]
  - Myalgia [Unknown]
  - Nasal congestion [Unknown]
  - Chills [Unknown]
  - Cough [Unknown]
  - Nasopharyngitis [Unknown]
  - Oropharyngeal pain [Not Recovered/Not Resolved]
  - Headache [Not Recovered/Not Resolved]

NARRATIVE: CASE EVENT DATE: 20210921
